FAERS Safety Report 14510965 (Version 2)
Quarter: 2018Q1

REPORT INFORMATION
  Report Type: Spontaneous
  Country: IL (occurrence: IL)
  Receive Date: 20180209
  Receipt Date: 20180226
  Transmission Date: 20180509
  Serious: Yes (Death, Hospitalization)
  Sender: FDA-Public Use
  Company Number: IL-JNJFOC-20180204821

PATIENT
  Age: 69 Year
  Sex: Female

DRUGS (1)
  1. DARZALEX [Suspect]
     Active Substance: DARATUMUMAB
     Indication: PLASMA CELL MYELOMA

REACTIONS (5)
  - Dyspnoea [Fatal]
  - Wrong technique in product usage process [Unknown]
  - Infusion related reaction [Fatal]
  - Staphylococcal infection [Fatal]
  - Pneumonitis [Fatal]
